FAERS Safety Report 20512873 (Version 8)
Quarter: 2022Q3

REPORT INFORMATION
  Report Type: Spontaneous
  Country: CA (occurrence: CA)
  Receive Date: 20220224
  Receipt Date: 20220919
  Transmission Date: 20221027
  Serious: Yes (Hospitalization, Other)
  Sender: FDA-Public Use
  Company Number: CA-PFIZER INC-202200267582

PATIENT
  Age: 3 Year
  Sex: Female

DRUGS (8)
  1. SOMATROPIN [Suspect]
     Active Substance: SOMATROPIN
     Indication: Growth hormone deficiency
     Dosage: 700 UG AT EVERY 6 WEEK
     Route: 042
     Dates: start: 20180801, end: 20220215
  2. SOMATROPIN [Suspect]
     Active Substance: SOMATROPIN
     Indication: Prader-Willi syndrome
     Dosage: 700 UG  6X/WEEK
     Route: 042
     Dates: start: 20180801, end: 20220215
  3. SOMATROPIN [Suspect]
     Active Substance: SOMATROPIN
     Dosage: 700 UG AT EVERY 6 WEEK
     Route: 042
     Dates: start: 20220215
  4. SOMATROPIN [Suspect]
     Active Substance: SOMATROPIN
     Dosage: 0.5 MG, 6X/WEEK
     Route: 058
     Dates: start: 202209
  5. SOMATROPIN [Suspect]
     Active Substance: SOMATROPIN
     Dosage: 1.0 MG, 6X/WEEK
     Route: 058
     Dates: start: 202209
  6. NORDITROPIN [Concomitant]
     Active Substance: SOMATROPIN
     Dosage: UNK
  7. LEVOTHYROXINE [Concomitant]
     Active Substance: LEVOTHYROXINE
     Indication: Hypothyroidism
     Dosage: 37.5 UG, DAILY
     Route: 048
     Dates: start: 202202
  8. VITAMIN D NOS [Concomitant]
     Active Substance: VITAMIN D NOS
     Dosage: 1000 IU, DAILY
     Route: 048

REACTIONS (8)
  - Obstructive sleep apnoea syndrome [Unknown]
  - COVID-19 [Unknown]
  - Dehydration [Unknown]
  - Pyrexia [Unknown]
  - Diarrhoea [Unknown]
  - Cough [Unknown]
  - Tonsillar disorder [Not Recovered/Not Resolved]
  - Snoring [Unknown]

NARRATIVE: CASE EVENT DATE: 20211226
